FAERS Safety Report 18640020 (Version 2)
Quarter: 2021Q4

REPORT INFORMATION
  Report Type: Spontaneous
  Country: US (occurrence: US)
  Receive Date: 20201220
  Receipt Date: 20211217
  Transmission Date: 20220304
  Serious: No
  Sender: FDA-Public Use
  Company Number: US-PACIRA-202000408

PATIENT
  Age: 68 Year
  Sex: Female

DRUGS (5)
  1. EXPAREL [Suspect]
     Active Substance: BUPIVACAINE
     Dosage: 133 MG (10 ML) WITH 10 ML OF 0.5% BUP?VACAINE
     Route: 065
     Dates: start: 20200928, end: 20200928
  2. BUPIVACAINE [Suspect]
     Active Substance: BUPIVACAINE
     Dosage: 10 ML WITH 10 ML OF EXPAREL
     Route: 065
     Dates: start: 20200928, end: 20200928
  3. CLINDAMYCIN [Concomitant]
     Active Substance: CLINDAMYCIN
     Dosage: 600 MG PREOPERATIVELY
     Route: 042
     Dates: start: 20200928, end: 20200928
  4. LEVOTHYROXINE [Concomitant]
     Active Substance: LEVOTHYROXINE
     Dosage: 175 EVERY OTHER DAY
     Route: 048
  5. VENLAFAXINE [Concomitant]
     Active Substance: VENLAFAXINE HYDROCHLORIDE
     Dosage: 37.5 ONE TABLET IN THE MORNING
     Route: 065

REACTIONS (2)
  - Drug ineffective [Recovered/Resolved]
  - Pain [Recovered/Resolved]

NARRATIVE: CASE EVENT DATE: 20200928
